FAERS Safety Report 11349332 (Version 1)
Quarter: 2015Q3

REPORT INFORMATION
  Report Type: Spontaneous
  Country: GB (occurrence: None)
  Receive Date: 20150805
  Receipt Date: 20150805
  Transmission Date: 20151125
  Serious: Yes (Hospitalization)
  Sender: FDA-Public Use
  Company Number: 2015HINLIT0632

PATIENT
  Age: 75 Year
  Sex: Female

DRUGS (2)
  1. ACYCLOVIR (ACYCLOVIR) UNKNOWN [Suspect]
     Active Substance: ACYCLOVIR
     Indication: HERPES SIMPLEX ENCEPHALITIS
     Dosage: 5 TIMES A DAY
     Route: 048
  2. ACYCLOVIR (ACYCLOVIR) UNKNOWN [Suspect]
     Active Substance: ACYCLOVIR
     Indication: ORAL HERPES
     Dosage: 5 TIMES A DAY
     Route: 048

REACTIONS (14)
  - Lower respiratory tract infection [None]
  - Tongue coated [None]
  - Oral candidiasis [None]
  - Breath odour [None]
  - Confusional state [None]
  - Balance disorder [None]
  - Myoclonus [None]
  - Lymphocyte count decreased [None]
  - VIIth nerve paralysis [None]
  - Coma scale abnormal [None]
  - Mouth ulceration [None]
  - Neurotoxicity [None]
  - Hallucination, visual [None]
  - Acute kidney injury [None]
